FAERS Safety Report 4814205-9 (Version None)
Quarter: 2005Q4

REPORT INFORMATION
  Report Type: 
  Country: None (occurrence: None)
  Receive Date: 20051028
  Receipt Date: 20050718
  Transmission Date: 20060501
  Serious: No
  Sender: FDA-Public Use
  Company Number: US-GLAXOSMITHKLINE-A0566778A

PATIENT
  Sex: Male

DRUGS (1)
  1. ADVAIR DISKUS 100/50 [Suspect]
     Indication: DRUG USE FOR UNKNOWN INDICATION
     Route: 055
     Dates: end: 20050626

REACTIONS (4)
  - HYPOAESTHESIA [None]
  - HYPOAESTHESIA ORAL [None]
  - PARAESTHESIA [None]
  - PARAESTHESIA ORAL [None]
